FAERS Safety Report 25443040 (Version 1)
Quarter: 2025Q2

REPORT INFORMATION
  Report Type: Spontaneous
  Country: GB (occurrence: GB)
  Receive Date: 20250617
  Receipt Date: 20250617
  Transmission Date: 20250716
  Serious: Yes (Other)
  Sender: CELLTRION
  Company Number: GB-CELLTRION INC.-2025GB018501

PATIENT

DRUGS (1)
  1. YUFLYMA [Suspect]
     Active Substance: ADALIMUMAB-AATY
     Indication: Crohn^s disease
     Dosage: 2 X YUFLYMA 40MG FOR INJECTION PENS (INJECT ONE PRE-FILLED PEN EVERY TWO WEEKS)
     Route: 058
     Dates: start: 20240325

REACTIONS (2)
  - Spinal operation [Unknown]
  - Intentional dose omission [Unknown]
